FAERS Safety Report 5510057-2 (Version None)
Quarter: 2007Q4

REPORT INFORMATION
  Report Type: 
  Country: None (occurrence: None)
  Receive Date: 20071108
  Receipt Date: 20070801
  Transmission Date: 20080405
  Serious: No
  Sender: FDA-Public Use
  Company Number: US-ABBOTT-07P-163-0376780-00

PATIENT
  Sex: Female
  Weight: 59.928 kg

DRUGS (2)
  1. TARKA [Suspect]
     Indication: HYPERTENSION
     Dates: start: 20070101
  2. INEGY [Concomitant]
     Indication: BLOOD CHOLESTEROL INCREASED
     Route: 048

REACTIONS (2)
  - RASH ERYTHEMATOUS [None]
  - SENSORY DISTURBANCE [None]
